FAERS Safety Report 7568752-X (Version None)
Quarter: 2011Q2

REPORT INFORMATION
  Report Type: 
  Country: None (occurrence: None)
  Receive Date: 20110623
  Receipt Date: 20110621
  Transmission Date: 20111010
  Serious: Yes (Death)
  Sender: FDA-Public Use
  Company Number: US-B.I. PHARMACEUTICALS,INC./RIDGEFIELD-2011-BP-11336BP

PATIENT
  Sex: Male

DRUGS (5)
  1. METOPROLOL TARTRATE [Concomitant]
  2. BACTRIM DS [Concomitant]
  3. PRADAXA [Suspect]
     Indication: ATRIAL FIBRILLATION
     Dosage: 150 MG
     Route: 048
     Dates: start: 20110331
  4. ASPIRIN [Concomitant]
     Dosage: 81 MG
  5. LASIX [Concomitant]
     Dosage: 160 MG

REACTIONS (6)
  - INTESTINAL HAEMORRHAGE [None]
  - RECTAL HAEMORRHAGE [None]
  - HYPOTENSION [None]
  - MOUTH HAEMORRHAGE [None]
  - DIZZINESS [None]
  - GASTRIC HAEMORRHAGE [None]
